FAERS Safety Report 9486586 (Version 1)
Quarter: 2013Q3

REPORT INFORMATION
  Report Type: Report from Study
  Country: BR (occurrence: BR)
  Receive Date: 20130829
  Receipt Date: 20130829
  Transmission Date: 20140515
  Serious: Yes (Hospitalization, Other)
  Sender: FDA-Public Use
  Company Number: PHHY2013BR094045

PATIENT
  Sex: Male
  Weight: 92 kg

DRUGS (1)
  1. DIOVAN [Suspect]
     Indication: INFARCTION
     Dosage: 1 TABLET (160 MG), DAILY
     Route: 048

REACTIONS (1)
  - Infarction [Recovering/Resolving]
